FAERS Safety Report 15315375 (Version 1)
Quarter: 2018Q3

REPORT INFORMATION
  Report Type: Spontaneous
  Country: US (occurrence: US)
  Receive Date: 20180824
  Receipt Date: 20180824
  Transmission Date: 20181010
  Serious: Yes (Hospitalization)
  Sender: FDA-Public Use
  Company Number: US-JNJFOC-20180817073

PATIENT
  Sex: Female

DRUGS (1)
  1. TREMFYA [Suspect]
     Active Substance: GUSELKUMAB
     Indication: PSORIASIS
     Route: 058

REACTIONS (4)
  - Nausea [Recovering/Resolving]
  - Diarrhoea [Recovering/Resolving]
  - Abdominal symptom [Recovering/Resolving]
  - Abdominal rigidity [Not Recovered/Not Resolved]
